FAERS Safety Report 14158545 (Version 1)
Quarter: 2017Q4

REPORT INFORMATION
  Report Type: Spontaneous
  Country: FR (occurrence: FR)
  Receive Date: 20171106
  Receipt Date: 20171106
  Transmission Date: 20180321
  Serious: Yes (Hospitalization)
  Sender: FDA-Public Use
  Company Number: FR-AUROBINDO-AUR-APL-2017-42990

PATIENT

DRUGS (5)
  1. CLINDAMYCIN. [Suspect]
     Active Substance: CLINDAMYCIN
     Indication: ABDOMINAL ABSCESS
     Dosage: 600 MG, DAILY
     Route: 042
     Dates: start: 20171010, end: 20171019
  2. FLUCONAZOLE KABI [Suspect]
     Active Substance: FLUCONAZOLE
     Indication: ABDOMINAL ABSCESS
     Dosage: 400 MG, DAILY
     Route: 042
     Dates: start: 20171005, end: 20171019
  3. CEFTRIAXONE. [Suspect]
     Active Substance: CEFTRIAXONE
     Indication: ABDOMINAL ABSCESS
     Dosage: 4 G, DAILY
     Route: 042
     Dates: start: 20171005, end: 20171019
  4. FLUCONAZOLE ARROW [Suspect]
     Active Substance: FLUCONAZOLE
     Indication: ABDOMINAL ABSCESS
     Dosage: 400 MG, DAILY
     Route: 048
     Dates: start: 20171019
  5. CLINDAMYCIN. [Suspect]
     Active Substance: CLINDAMYCIN
     Indication: ABDOMINAL ABSCESS
     Dosage: 600 MG, DAILY
     Route: 048
     Dates: start: 20171019

REACTIONS (1)
  - Blood alkaline phosphatase increased [Not Recovered/Not Resolved]

NARRATIVE: CASE EVENT DATE: 20171020
